FAERS Safety Report 18573297 (Version 1)
Quarter: 2020Q4

REPORT INFORMATION
  Report Type: Spontaneous
  Country: CN (occurrence: CN)
  Receive Date: 20201203
  Receipt Date: 20201203
  Transmission Date: 20210114
  Serious: Yes (Other)
  Sender: FDA-Public Use
  Company Number: CN-BAXTER-2020BAX024318

PATIENT
  Age: 64 Year
  Sex: Female
  Weight: 48 kg

DRUGS (4)
  1. ENDOXAN [Suspect]
     Active Substance: CYCLOPHOSPHAMIDE
     Indication: BREAST CANCER
     Dosage: CYCLOPHOSPHAMIDE 0.6G + 0.9% NS 50ML
     Route: 041
     Dates: start: 20201117, end: 20201117
  2. 0.9% SODIUM CHLORIDE INJECTION [Suspect]
     Active Substance: SODIUM CHLORIDE
     Dosage: EPIRUBICIN 100 MG+ 0.9% NS 250ML
     Route: 041
     Dates: start: 20201117, end: 20201117
  3. AIDASHENG [Suspect]
     Active Substance: EPIRUBICIN HYDROCHLORIDE
     Indication: BREAST CANCER
     Dosage: EPIRUBICIN HYDROCHLORIDE 100 MG + 0.9% NS 250 ML
     Route: 041
     Dates: start: 20201117, end: 20201117
  4. 0.9% SODIUM CHLORIDE INJECTION [Suspect]
     Active Substance: SODIUM CHLORIDE
     Indication: MEDICATION DILUTION
     Dosage: CYCLOPHOSPHAMIDE 0.6G + 0.9% NS 50ML
     Route: 041
     Dates: start: 20201117, end: 20201117

REACTIONS (1)
  - Hyperpyrexia [Recovering/Resolving]

NARRATIVE: CASE EVENT DATE: 20201117
